FAERS Safety Report 7036983-3 (Version None)
Quarter: 2010Q4

REPORT INFORMATION
  Report Type: 
  Country: None (occurrence: None)
  Receive Date: 20101011
  Receipt Date: 20101007
  Transmission Date: 20110411
  Serious: Yes (Hospitalization, Other)
  Sender: FDA-Public Use
  Company Number: AU-BRISTOL-MYERS SQUIBB COMPANY-15324965

PATIENT
  Age: 60 Year
  Sex: Female
  Weight: 57 kg

DRUGS (9)
  1. CARBOPLATIN [Suspect]
     Indication: NON-SMALL CELL LUNG CANCER
     Dosage: INTERRUPTED ON 17SEP10.
  2. PACLITAXEL [Suspect]
     Indication: NON-SMALL CELL LUNG CANCER
     Dosage: INTERRUPTED ON 17SEP10
  3. MIRTAZAPINE [Concomitant]
     Indication: INSOMNIA
     Dates: start: 20100823
  4. OXAZEPAM [Concomitant]
     Indication: INSOMNIA
     Dates: start: 20100611
  5. NULYTELY [Concomitant]
     Indication: CONSTIPATION
     Dosage: 1 DF=1SACHET
     Dates: start: 20100601
  6. OXYCODONE HCL [Concomitant]
     Indication: PAIN
     Dosage: ONGOING
     Dates: start: 20100610
  7. OXYCODONE [Concomitant]
     Indication: PAIN
     Dosage: ONGOING
     Dates: start: 20100608
  8. PARACETAMOL [Concomitant]
     Indication: PAIN
     Dates: start: 20100608
  9. TEMAZEPAM [Concomitant]
     Indication: INSOMNIA
     Dosage: ONGOING
     Dates: start: 20100701

REACTIONS (1)
  - RASH PUSTULAR [None]
